FAERS Safety Report 7015554-9 (Version None)
Quarter: 2010Q3

REPORT INFORMATION
  Report Type: 
  Country: None (occurrence: None)
  Receive Date: 20100927
  Receipt Date: 20100917
  Transmission Date: 20110219
  Serious: Yes (Death, Other)
  Sender: FDA-Public Use
  Company Number: US-PURDUE-USA-2010-0047165

PATIENT
  Age: 27 Year
  Sex: Male

DRUGS (1)
  1. OXYCODONE HCL [Suspect]
     Indication: PRODUCT USED FOR UNKNOWN INDICATION

REACTIONS (3)
  - DRUG DEPENDENCE [None]
  - ROAD TRAFFIC ACCIDENT [None]
  - SEDATION [None]
